FAERS Safety Report 5536056-2 (Version None)
Quarter: 2007Q4

REPORT INFORMATION
  Report Type: 
  Country: None (occurrence: None)
  Receive Date: 20071120
  Receipt Date: 20070823
  Transmission Date: 20080405
  Serious: No
  Sender: FDA-Public Use
  Company Number: WAES 0708USA04486

PATIENT
  Age: 54 Year
  Sex: Female

DRUGS (4)
  1. JANUVIA [Suspect]
     Indication: TYPE 2 DIABETES MELLITUS
     Dosage: 100 MG BID PO
     Route: 048
     Dates: start: 20070803
  2. CRESTOR [Concomitant]
  3. THERAPY UNSPECIFIED [Concomitant]
  4. METFORMIN HCL [Concomitant]

REACTIONS (3)
  - INAPPROPRIATE SCHEDULE OF DRUG ADMINISTRATION [None]
  - OVERDOSE [None]
  - UPPER RESPIRATORY TRACT INFECTION [None]
